FAERS Safety Report 11713148 (Version 1)
Quarter: 2015Q4

REPORT INFORMATION
  Report Type: Spontaneous
  Country: US (occurrence: US)
  Receive Date: 20151109
  Receipt Date: 20151109
  Transmission Date: 20160304
  Serious: No
  Sender: FDA-Public Use
  Company Number: US-LUPIN PHARMACEUTICALS INC.-E2B_00004148

PATIENT
  Sex: Female

DRUGS (1)
  1. LOSORTAN POTASSIUM [Suspect]
     Active Substance: LOSARTAN POTASSIUM
     Indication: HYPERTENSION
     Route: 048
     Dates: start: 201505, end: 20150813

REACTIONS (2)
  - Photosensitivity reaction [Not Recovered/Not Resolved]
  - Skin burning sensation [Not Recovered/Not Resolved]
